FAERS Safety Report 15339866 (Version 2)
Quarter: 2018Q4

REPORT INFORMATION
  Report Type: Report from Study
  Country: FR (occurrence: FR)
  Receive Date: 20180831
  Receipt Date: 20181015
  Transmission Date: 20190204
  Serious: Yes (Hospitalization)
  Sender: FDA-Public Use
  Company Number: FR-PFIZER INC-2018339477

PATIENT
  Age: 79 Year
  Sex: Female
  Weight: 70 kg

DRUGS (13)
  1. PALBOCICLIB [Suspect]
     Active Substance: PALBOCICLIB
     Indication: BREAST CANCER RECURRENT
     Dosage: 125 MG, ONCE A DAY CYCLIC (3 WEEKS THEN 1-WEEK BREAK)
     Route: 048
     Dates: start: 20180522
  2. EXEMESTANE. [Suspect]
     Active Substance: EXEMESTANE
     Indication: BREAST CANCER RECURRENT
     Dosage: 25 MG, ONCE A DAY CYCLIC (3 WEEKS THEN 1-WEEK BREAK)
     Route: 048
     Dates: start: 20180522
  3. PLAVIX [Concomitant]
     Active Substance: CLOPIDOGREL BISULFATE
     Dosage: 1 DF, 1X/DAY
  4. TAHOR [Concomitant]
     Active Substance: ATORVASTATIN CALCIUM
     Dosage: 80, 1X/DAY IN THE EVENING
  5. BISOPROLOL [Concomitant]
     Active Substance: BISOPROLOL
     Dosage: 1 DF, 1X/DAY
  6. FUROSEMIDE. [Concomitant]
     Active Substance: FUROSEMIDE
     Dosage: 1 DF, 1X/DAY IN THE MORNING
  7. LEVOTHYROX [Concomitant]
     Active Substance: LEVOTHYROXINE
     Dosage: 1 DF, 1X/DAY IN THE MORNING
  8. METFORMIN [Concomitant]
     Active Substance: METFORMIN HYDROCHLORIDE
     Dosage: 1 DF, 1X/DAY
  9. POTASSIUM [Concomitant]
     Active Substance: POTASSIUM
     Dosage: 1 DF, 2X/DAY (MORNING AND EVENING)
  10. DOLIPRANE [Concomitant]
     Active Substance: ACETAMINOPHEN
  11. IKOREL [Concomitant]
     Active Substance: NICORANDIL
     Dosage: 2 DF, 2X/DAY
  12. AZANTAC [Concomitant]
     Active Substance: RANITIDINE HYDROCHLORIDE
     Dosage: 1 DF, 1X/DAY
  13. RAMIPRIL. [Concomitant]
     Active Substance: RAMIPRIL
     Dosage: ONE DF, 1X/DAY IN THE MORNING

REACTIONS (1)
  - Urinary tract infection [Recovered/Resolved]

NARRATIVE: CASE EVENT DATE: 20180811
